FAERS Safety Report 6500859-8 (Version None)
Quarter: 2009Q4

REPORT INFORMATION
  Report Type: 
  Country: None (occurrence: None)
  Receive Date: 20091216
  Receipt Date: 20090326
  Transmission Date: 20100525
  Serious: No
  Sender: FDA-Public Use
  Company Number: A0775621A

PATIENT
  Age: 71 Year
  Sex: Female

DRUGS (1)
  1. COMMIT [Suspect]

REACTIONS (10)
  - BLISTER [None]
  - DYSPHAGIA [None]
  - EATING DISORDER [None]
  - HYPERSENSITIVITY [None]
  - MOUTH ULCERATION [None]
  - OROPHARYNGEAL BLISTERING [None]
  - SWOLLEN TONGUE [None]
  - TONGUE BLISTERING [None]
  - TONGUE DISORDER [None]
  - TONGUE ULCERATION [None]
